FAERS Safety Report 7178816-0 (Version None)
Quarter: 2010Q4

REPORT INFORMATION
  Report Type: 
  Country: None (occurrence: None)
  Receive Date: 20101221
  Receipt Date: 20101208
  Transmission Date: 20110411
  Serious: Yes (Other)
  Sender: FDA-Public Use
  Company Number: US-ELI_LILLY_AND_COMPANY-US201012003158

PATIENT
  Sex: Female

DRUGS (19)
  1. FORTEO [Suspect]
     Indication: OSTEOPOROSIS
     Dosage: 20 UG, DAILY (1/D)
     Dates: start: 20090713
  2. HYDROXYCHLOROQUINE [Concomitant]
     Dosage: 200 MG, 2/D
  3. EXFORGE [Concomitant]
     Dosage: UNK, DAILY (1/D)
  4. CLARINEX [Concomitant]
     Dosage: 5 MG, DAILY (1/D)
  5. CYCLOVIR [Concomitant]
     Dosage: 400 MG, DAILY (1/D)
  6. NEXIUM [Concomitant]
     Dosage: 4 MG, DAILY (1/D)
  7. NEXIUM [Concomitant]
     Dosage: 40 MG, DAILY (1/D)
  8. ESTRADIOL [Concomitant]
     Dosage: 0.5 MG, UNK
  9. MEDROXYPROGESTERONE [Concomitant]
     Dosage: 2.5 MG, UNK
  10. ADDERALL 10 [Concomitant]
     Dosage: 10 MG, 3/D
  11. TYLENOL (CAPLET) [Concomitant]
     Dosage: 65 MG, 2/D
  12. MULTI-VITAMIN [Concomitant]
     Dosage: UNK, DAILY (1/D)
  13. CALCIUM CITRATE W/VITAMIN D NOS [Concomitant]
     Dosage: UNK, 2/D
  14. C-VITAMIN [Concomitant]
     Dosage: 1000 MG, DAILY (1/D)
  15. ALPHA LIPOIC ACID [Concomitant]
     Dosage: 300 MG, DAILY (1/D)
  16. CURCUMEN [Concomitant]
     Dosage: 900 MG, DAILY (1/D)
  17. VITAMIN D3 [Concomitant]
     Dosage: 2500 IU, UNK
  18. FERROUS SULFATE [Concomitant]
  19. ASPIRIN [Concomitant]
     Dosage: 81 MG, DAILY (1/D)

REACTIONS (6)
  - CHEST PAIN [None]
  - COUGH [None]
  - INFLAMMATORY MARKER INCREASED [None]
  - MIXED CONNECTIVE TISSUE DISEASE [None]
  - PLEURISY [None]
  - VISUAL ACUITY REDUCED [None]
